FAERS Safety Report 4829035-1 (Version None)
Quarter: 2005Q4

REPORT INFORMATION
  Report Type: 
  Country: None (occurrence: None)
  Receive Date: 20051027
  Receipt Date: 20050824
  Transmission Date: 20060501
  Serious: Yes (Hospitalization, Other)
  Sender: FDA-Public Use
  Company Number: 200516359US

PATIENT
  Age: 30 Year
  Sex: Female

DRUGS (2)
  1. ARAVA [Suspect]
     Indication: RHEUMATOID ARTHRITIS
  2. ENBREL [Concomitant]

REACTIONS (3)
  - ALVEOLITIS ALLERGIC [None]
  - HEADACHE [None]
  - LUNG INJURY [None]
